FAERS Safety Report 15100552 (Version 2)
Quarter: 2018Q3

REPORT INFORMATION
  Report Type: Spontaneous
  Country: FR (occurrence: FR)
  Receive Date: 20180703
  Receipt Date: 20180829
  Transmission Date: 20181010
  Serious: Yes (Hospitalization, Other)
  Sender: FDA-Public Use
  Company Number: FR-REGENERON PHARMACEUTICALS, INC.-2018-26613

PATIENT

DRUGS (1)
  1. EYLEA [Suspect]
     Active Substance: AFLIBERCEPT
     Indication: PRODUCT USED FOR UNKNOWN INDICATION
     Dosage: UNK
     Dates: start: 20180604, end: 20180604

REACTIONS (5)
  - Drug monitoring procedure not performed [Unknown]
  - Eye pain [Unknown]
  - Blindness [Unknown]
  - Endophthalmitis [Unknown]
  - Vision blurred [Unknown]

NARRATIVE: CASE EVENT DATE: 20180605
